FAERS Safety Report 5510963-9 (Version None)
Quarter: 2007Q4

REPORT INFORMATION
  Report Type: 
  Country: None (occurrence: None)
  Receive Date: 20071109
  Receipt Date: 20071101
  Transmission Date: 20080405
  Serious: Yes (Hospitalization, Other)
  Sender: FDA-Public Use
  Company Number: PHHO2007CA14882

PATIENT
  Age: 59 Year
  Sex: Female

DRUGS (1)
  1. NILOTINIB [Suspect]
     Indication: GASTROINTESTINAL STROMAL TUMOUR
     Dosage: 400 MG, BID
     Route: 048
     Dates: start: 20070813, end: 20070903

REACTIONS (7)
  - ANAEMIA [None]
  - ASTHENIA [None]
  - GASTROINTESTINAL PAIN [None]
  - MALIGNANT NEOPLASM PROGRESSION [None]
  - NAUSEA [None]
  - PAIN [None]
  - VOMITING [None]
